FAERS Safety Report 4281819-7 (Version None)
Quarter: 2004Q1

REPORT INFORMATION
  Report Type: 
  Country: None (occurrence: None)
  Receive Date: 20040129
  Receipt Date: 20040129
  Transmission Date: 20041129
  Serious: Yes (Other)
  Sender: FDA-Public Use
  Company Number: None

PATIENT
  Sex: Male
  Weight: 90.7194 kg

DRUGS (2)
  1. PAXIL CR [Suspect]
     Indication: ANXIETY
     Dosage: 25 MG PER DAY ORAL
     Route: 048
     Dates: start: 20021101, end: 20040124
  2. PAXIL CR [Suspect]
     Indication: DEPRESSION
     Dosage: 25 MG PER DAY ORAL
     Route: 048
     Dates: start: 20021101, end: 20040124

REACTIONS (1)
  - DRUG WITHDRAWAL SYNDROME [None]
